FAERS Safety Report 10514393 (Version 1)
Quarter: 2014Q4

REPORT INFORMATION
  Report Type: Spontaneous
  Country: US (occurrence: US)
  Receive Date: 20141013
  Receipt Date: 20141013
  Transmission Date: 20150528
  Serious: Yes (Other)
  Sender: FDA-Public Use
  Company Number: US-TEVA-513940USA

PATIENT
  Age: 42 Year
  Sex: Female

DRUGS (19)
  1. NUVIGIL [Concomitant]
     Active Substance: ARMODAFINIL
  2. SUMATRIPTAN. [Concomitant]
     Active Substance: SUMATRIPTAN
  3. CULTURELLE [Concomitant]
     Active Substance: LACTOBACILLUS RHAMNOSUS
  4. PROPRANOLOL [Concomitant]
     Active Substance: PROPRANOLOL\PROPRANOLOL HYDROCHLORIDE
  5. PROPRANOLOL [Concomitant]
     Active Substance: PROPRANOLOL\PROPRANOLOL HYDROCHLORIDE
  6. VENTOLIN [Concomitant]
     Active Substance: ALBUTEROL SULFATE
  7. ABILIFY [Concomitant]
     Active Substance: ARIPIPRAZOLE
  8. LINZESS [Concomitant]
     Active Substance: LINACLOTIDE
  9. OMEPRAZOLE. [Concomitant]
     Active Substance: OMEPRAZOLE
  10. CARAFATE [Concomitant]
     Active Substance: SUCRALFATE
  11. PROZAC [Concomitant]
     Active Substance: FLUOXETINE HYDROCHLORIDE
  12. LORATADINE. [Concomitant]
     Active Substance: LORATADINE
  13. DEXTROAMPHETAMINE SULFATE. [Suspect]
     Active Substance: DEXTROAMPHETAMINE SULFATE
     Indication: NARCOLEPSY
     Dosage: 40 MILLIGRAM DAILY;
     Route: 048
  14. AZELASTINE [Concomitant]
     Active Substance: AZELASTINE
  15. NASONEX [Concomitant]
     Active Substance: MOMETASONE FUROATE
  16. MYRBETRIQ [Suspect]
     Active Substance: MIRABEGRON
     Indication: HYPERTONIC BLADDER
     Dosage: 50 MILLIGRAM DAILY;
     Route: 048
     Dates: start: 20140529, end: 20140813
  17. BUSPIRONE [Concomitant]
     Active Substance: BUSPIRONE HYDROCHLORIDE
  18. ATIVAN [Concomitant]
     Active Substance: LORAZEPAM
  19. SYMBICORT [Concomitant]
     Active Substance: BUDESONIDE\FORMOTEROL FUMARATE DIHYDRATE

REACTIONS (2)
  - Supraventricular tachycardia [Recovered/Resolved]
  - Intentional product use issue [Unknown]
